FAERS Safety Report 8963094 (Version 2)
Quarter: 2012Q4

REPORT INFORMATION
  Report Type: Spontaneous
  Country: US (occurrence: None)
  Receive Date: 20121128
  Receipt Date: 20121203
  Transmission Date: 20130627
  Serious: Yes (Death, Hospitalization)
  Sender: FDA-Public Use
  Company Number: 2012034046

PATIENT
  Age: 17 Month
  Sex: Female

DRUGS (4)
  1. ALBUMINAR [Suspect]
     Route: 042
     Dates: start: 20121120, end: 20121120
  2. DEXTROSE AND SODIUM CHLORIDE [Suspect]
     Route: 042
  3. ALL OTHER THERAPEUTIC PRODUCTS [Suspect]
     Route: 042
  4. ANESTHESIA [Suspect]

REACTIONS (1)
  - Cardio-respiratory arrest [None]
